FAERS Safety Report 6646685-0 (Version None)
Quarter: 2010Q1

REPORT INFORMATION
  Report Type: 
  Country: None (occurrence: None)
  Receive Date: 20100322
  Receipt Date: 20100322
  Transmission Date: 20100710
  Serious: Yes (Other)
  Sender: FDA-Public Use
  Company Number: None

PATIENT
  Age: 73 Year
  Sex: Male
  Weight: 99.7913 kg

DRUGS (1)
  1. ADVAIR DISKUS 100/50 [Suspect]
     Indication: WHEEZING
     Dosage: ONCE DAILY
     Dates: start: 20090203, end: 20090205

REACTIONS (2)
  - DYSPNOEA [None]
  - PRODUCT SUBSTITUTION ISSUE [None]
